FAERS Safety Report 23987147 (Version 2)
Quarter: 2024Q2

REPORT INFORMATION
  Report Type: Spontaneous
  Country: US (occurrence: US)
  Receive Date: 20240618
  Receipt Date: 20240618
  Transmission Date: 20240715
  Serious: Yes (Hospitalization)
  Sender: FDA-Public Use
  Company Number: US-SERB S.A.S.-2158259

PATIENT
  Age: 29 Year
  Sex: Female

DRUGS (1)
  1. CROFAB [Suspect]
     Active Substance: CROTALIDAE POLYVALENT IMMUNE FAB (OVINE)
     Indication: Snake bite

REACTIONS (2)
  - Coagulopathy [Unknown]
  - Exposure during pregnancy [Unknown]
